FAERS Safety Report 7260923-5 (Version None)
Quarter: 2011Q1

REPORT INFORMATION
  Report Type: 
  Country: None (occurrence: None)
  Receive Date: 20110130
  Receipt Date: 20101227
  Transmission Date: 20110831
  Serious: No
  Sender: FDA-Public Use
  Company Number: US-ABBOTT-10P-163-0693788-00

PATIENT
  Age: 71 Year
  Sex: Female

DRUGS (5)
  1. HYDROCLORITON [Concomitant]
     Indication: PRODUCT USED FOR UNKNOWN INDICATION
  2. METHOTREXATE [Concomitant]
     Indication: PRODUCT USED FOR UNKNOWN INDICATION
  3. ANTIBIOTIC [Concomitant]
     Indication: URINARY TRACT INFECTION
  4. LOSARTAN POTASSIUM [Concomitant]
     Indication: PRODUCT USED FOR UNKNOWN INDICATION
  5. HUMIRA [Suspect]
     Indication: RHEUMATOID ARTHRITIS
     Dates: start: 20101101

REACTIONS (4)
  - LIP PAIN [None]
  - CHEILITIS [None]
  - LIP SWELLING [None]
  - URINARY TRACT INFECTION [None]
